FAERS Safety Report 5807479-9 (Version None)
Quarter: 2008Q3

REPORT INFORMATION
  Report Type: 
  Country: None (occurrence: None)
  Receive Date: 20080709
  Receipt Date: 20080709
  Transmission Date: 20090109
  Serious: No
  Sender: FDA-Public Use
  Company Number: None

PATIENT
  Age: 62 Year
  Sex: Male
  Weight: 48 kg

DRUGS (2)
  1. MORPHINE [Suspect]
     Dosage: 60 MG TID PO
     Route: 048
     Dates: start: 20080321, end: 20080323
  2. ALPRAZOLAM [Suspect]
     Dosage: 0.5 MG TID PO
     Route: 048
     Dates: start: 20080321, end: 20080323

REACTIONS (2)
  - DEPRESSED LEVEL OF CONSCIOUSNESS [None]
  - HYPERCAPNIA [None]
